FAERS Safety Report 4557814-7 (Version None)
Quarter: 2005Q1

REPORT INFORMATION
  Report Type: 
  Country: None (occurrence: None)
  Receive Date: 20050118
  Receipt Date: 20050106
  Transmission Date: 20050727
  Serious: Yes (Death)
  Sender: FDA-Public Use
  Company Number: TCI2005A00035

PATIENT

DRUGS (1)
  1. ACTOS [Suspect]
     Indication: DIABETES MELLITUS
     Dosage: PER ORAL
     Route: 048
     Dates: end: 20041201

REACTIONS (3)
  - AZOTAEMIA [None]
  - CARDIAC FAILURE [None]
  - OEDEMA [None]
